FAERS Safety Report 5312383-9 (Version None)
Quarter: 2007Q2

REPORT INFORMATION
  Report Type: 
  Country: None (occurrence: None)
  Receive Date: 20070430
  Receipt Date: 20061218
  Transmission Date: 20071010
  Serious: No
  Sender: FDA-Public Use
  Company Number: 2006UW28130

PATIENT
  Age: 91 Year
  Sex: Female

DRUGS (5)
  1. NEXIUM [Suspect]
     Indication: GASTROOESOPHAGEAL REFLUX DISEASE
     Route: 048
     Dates: start: 20061211
  2. ZOCOR [Concomitant]
  3. ATENOLOL [Concomitant]
  4. LASIX [Concomitant]
  5. ASPIRIN [Concomitant]

REACTIONS (3)
  - DECREASED APPETITE [None]
  - DYSGEUSIA [None]
  - FAECES HARD [None]
